FAERS Safety Report 9792014 (Version 3)
Quarter: 2014Q1

REPORT INFORMATION
  Report Type: Spontaneous
  Country: JP (occurrence: JP)
  Receive Date: 20140102
  Receipt Date: 20140211
  Transmission Date: 20141002
  Serious: Yes (Hospitalization)
  Sender: FDA-Public Use
  Company Number: JP-SA-2013SA135723

PATIENT
  Age: 86 Year
  Sex: Female

DRUGS (6)
  1. IRBESARTAN [Suspect]
     Indication: PRODUCT USED FOR UNKNOWN INDICATION
     Route: 048
  2. CRESTOR [Suspect]
     Indication: DYSLIPIDAEMIA
     Route: 048
  3. ERGOCALCIFEROL [Concomitant]
     Indication: PRODUCT USED FOR UNKNOWN INDICATION
     Route: 048
  4. NATRIX [Concomitant]
     Indication: PRODUCT USED FOR UNKNOWN INDICATION
     Route: 048
  5. CALBLOCK [Concomitant]
  6. MEMARY [Concomitant]

REACTIONS (1)
  - Interstitial lung disease [Unknown]
